FAERS Safety Report 17134789 (Version 1)
Quarter: 2019Q4

REPORT INFORMATION
  Report Type: Report from Study
  Country: GB (occurrence: GB)
  Receive Date: 20191210
  Receipt Date: 20191210
  Transmission Date: 20200122
  Serious: Yes (Other)
  Sender: FDA-Public Use
  Company Number: PHHY2015GB122133

PATIENT
  Age: 35 Year
  Sex: Female

DRUGS (1)
  1. GILENYA [Suspect]
     Active Substance: FINGOLIMOD HYDROCHLORIDE
     Indication: MULTIPLE SCLEROSIS
     Dosage: UNK, QD
     Route: 048
     Dates: start: 20140416, end: 20160719

REACTIONS (22)
  - Hemiparesis [Not Recovered/Not Resolved]
  - Neck pain [Unknown]
  - Latent tuberculosis [Recovered/Resolved]
  - Urinary tract candidiasis [Unknown]
  - Pain in extremity [Not Recovered/Not Resolved]
  - Depressed mood [Not Recovered/Not Resolved]
  - Pollakiuria [Recovered/Resolved]
  - Dry eye [Unknown]
  - Weight decreased [Unknown]
  - White blood cell count decreased [Unknown]
  - Night sweats [Recovered/Resolved]
  - Lymphocyte count decreased [Unknown]
  - Blood alkaline phosphatase increased [Recovered/Resolved]
  - Musculoskeletal chest pain [Recovered/Resolved]
  - Bladder disorder [Unknown]
  - Pityriasis rosea [Unknown]
  - Cough [Recovered/Resolved]
  - Eye disorder [Unknown]
  - Affect lability [Not Recovered/Not Resolved]
  - Rash [Unknown]
  - Sensory disturbance [Recovered/Resolved]
  - Alanine aminotransferase increased [Recovered/Resolved]

NARRATIVE: CASE EVENT DATE: 20150721
